FAERS Safety Report 8033629-2 (Version None)
Quarter: 2011Q4

REPORT INFORMATION
  Report Type: 
  Country: None (occurrence: None)
  Receive Date: 20111223
  Receipt Date: 20111209
  Transmission Date: 20120403
  Serious: No
  Sender: FDA-Public Use
  Company Number: WAES 1111USA02248

PATIENT
  Age: 57 Year
  Sex: Female

DRUGS (43)
  1. EMEND [Suspect]
     Indication: PROPHYLAXIS OF NAUSEA AND VOMITING
     Dosage: 125 MG/DAILY, 80 MG/DAILY, 125 MG/DAILY, 80 MG/UNK, 125 MG/DAILY, 80 MG/DAILY
     Route: 048
     Dates: start: 20110601, end: 20110601
  2. EMEND [Suspect]
     Indication: PROPHYLAXIS OF NAUSEA AND VOMITING
     Dosage: 125 MG/DAILY, 80 MG/DAILY, 125 MG/DAILY, 80 MG/UNK, 125 MG/DAILY, 80 MG/DAILY
     Route: 048
     Dates: start: 20110414, end: 20110415
  3. EMEND [Suspect]
     Indication: PROPHYLAXIS OF NAUSEA AND VOMITING
     Dosage: 125 MG/DAILY, 80 MG/DAILY, 125 MG/DAILY, 80 MG/UNK, 125 MG/DAILY, 80 MG/DAILY
     Route: 048
     Dates: start: 20110413, end: 20110413
  4. EMEND [Suspect]
     Indication: PROPHYLAXIS OF NAUSEA AND VOMITING
     Dosage: 125 MG/DAILY, 80 MG/DAILY, 125 MG/DAILY, 80 MG/UNK, 125 MG/DAILY, 80 MG/DAILY
     Route: 048
     Dates: start: 20110511, end: 20110511
  5. EMEND [Suspect]
     Indication: PROPHYLAXIS OF NAUSEA AND VOMITING
     Dosage: 125 MG/DAILY, 80 MG/DAILY, 125 MG/DAILY, 80 MG/UNK, 125 MG/DAILY, 80 MG/DAILY
     Route: 048
     Dates: start: 20110323, end: 20110323
  6. EMEND [Suspect]
     Indication: PROPHYLAXIS OF NAUSEA AND VOMITING
     Dosage: 125 MG/DAILY, 80 MG/DAILY, 125 MG/DAILY, 80 MG/UNK, 125 MG/DAILY, 80 MG/DAILY
     Route: 048
     Dates: start: 20110324, end: 20110325
  7. EMEND [Suspect]
     Indication: PROPHYLAXIS OF NAUSEA AND VOMITING
     Dosage: 125 MG/DAILY, 80 MG/DAILY, 125 MG/DAILY, 80 MG/UNK, 125 MG/DAILY, 80 MG/DAILY
     Route: 048
     Dates: start: 20110512, end: 20110513
  8. ALOXI [Concomitant]
  9. COZAAR [Concomitant]
  10. COZAAR [Concomitant]
  11. DECADRON [Concomitant]
  12. CYCLOPHOSPHAMIDE [Concomitant]
  13. PEPCID [Concomitant]
  14. PRIMPERAN TAB [Concomitant]
  15. PRIMPERAN TAB [Concomitant]
  16. ACTOS [Concomitant]
  17. COZAAR [Concomitant]
  18. DOXORUBICIN HCL [Concomitant]
  19. ALOXI [Concomitant]
  20. COZAAR [Concomitant]
  21. NORVASC [Concomitant]
  22. DOXORUBICIN HCL [Concomitant]
  23. ACTOS [Concomitant]
  24. PEPCID [Concomitant]
  25. PRIMPERAN TAB [Concomitant]
  26. ACTOS [Concomitant]
  27. ALOXI [Concomitant]
  28. DECADRON [Concomitant]
  29. DECADRON [Concomitant]
  30. NORVASC [Concomitant]
  31. DOXORUBICIN HCL [Concomitant]
  32. ALOXI [Concomitant]
  33. NORVASC [Concomitant]
  34. NORVASC [Concomitant]
  35. PRIMPERAN TAB [Concomitant]
  36. ACTOS [Concomitant]
  37. CYCLOPHOSPHAMIDE [Concomitant]
  38. CYCLOPHOSPHAMIDE [Concomitant]
  39. DOXORUBICIN HCL [Concomitant]
  40. DECADRON [Concomitant]
  41. CYCLOPHOSPHAMIDE [Concomitant]
  42. PEPCID [Concomitant]
  43. PEPCID [Concomitant]

REACTIONS (1)
  - GASTRIC ULCER [None]
